FAERS Safety Report 6531043-X (Version None)
Quarter: 2010Q1

REPORT INFORMATION
  Report Type: 
  Country: None (occurrence: None)
  Receive Date: 20100108
  Receipt Date: 20091015
  Transmission Date: 20100710
  Serious: No
  Sender: FDA-Public Use
  Company Number: A0811994A

PATIENT
  Age: 47 Year
  Sex: Male

DRUGS (2)
  1. LOVAZA [Suspect]
     Dosage: 4000G UNKNOWN
     Route: 048
     Dates: start: 20090801
  2. NO CONCURRENT MEDICATION [Concomitant]

REACTIONS (3)
  - ADVERSE EVENT [None]
  - ERUCTATION [None]
  - INCORRECT STORAGE OF DRUG [None]
